FAERS Safety Report 5501703-8 (Version None)
Quarter: 2007Q4

REPORT INFORMATION
  Report Type: 
  Country: None (occurrence: None)
  Receive Date: 20071030
  Receipt Date: 20071022
  Transmission Date: 20080405
  Serious: Yes (Disabling, Other)
  Sender: FDA-Public Use
  Company Number: CA-AVENTIS-200719810GDDC

PATIENT
  Age: 80 Year
  Sex: Female

DRUGS (4)
  1. TAXOTERE [Suspect]
     Indication: BREAST CANCER
     Route: 042
     Dates: start: 20071002, end: 20071002
  2. DOXORUBICIN HCL [Concomitant]
     Dosage: DOSE: UNK
  3. CYCLOPHOSPHAMIDE [Concomitant]
     Dosage: DOSE: UNK
  4. UNKNOWN DRUG [Concomitant]

REACTIONS (2)
  - NEUTROPENIA [None]
  - TREMOR [None]
